FAERS Safety Report 21094412 (Version 1)
Quarter: 2022Q3

REPORT INFORMATION
  Report Type: Spontaneous
  Country: FR (occurrence: FR)
  Receive Date: 20220718
  Receipt Date: 20220718
  Transmission Date: 20221026
  Serious: Yes (Life-Threatening, Hospitalization)
  Sender: FDA-Public Use
  Company Number: None

PATIENT
  Age: 44 Year
  Sex: Male
  Weight: 85 kg

DRUGS (1)
  1. XELJANZ [Suspect]
     Active Substance: TOFACITINIB CITRATE
     Indication: Ankylosing spondylitis
     Dosage: 11 MG, 1X/DAY
     Route: 048
     Dates: start: 20210921

REACTIONS (3)
  - Pulmonary embolism [Recovered/Resolved with Sequelae]
  - Cardio-respiratory arrest [Recovered/Resolved]
  - Paradoxical embolism [Recovered/Resolved with Sequelae]

NARRATIVE: CASE EVENT DATE: 20210921
